FAERS Safety Report 5429318-0 (Version None)
Quarter: 2007Q3

REPORT INFORMATION
  Report Type: 
  Country: None (occurrence: None)
  Receive Date: 20070827
  Receipt Date: 20070827
  Transmission Date: 20080115
  Serious: Yes (Other)
  Sender: FDA-Public Use
  Company Number: None

PATIENT
  Sex: Male

DRUGS (8)
  1. REVLIMID [Suspect]
     Indication: AMYLOIDOSIS
     Dosage: 25MG DAILY X21D/28D PO
     Route: 048
     Dates: start: 20070702, end: 20070709
  2. FUROSEMIDE [Concomitant]
  3. METOLAZONE [Concomitant]
  4. WARFARIN SODIUM [Concomitant]
  5. DEXAMETHASONE 0.5MG TAB [Concomitant]
  6. SPIRONOLACTONE [Concomitant]
  7. LOVASTATIN [Concomitant]
  8. K-TAB [Concomitant]

REACTIONS (4)
  - ASTHENIA [None]
  - CONSTIPATION [None]
  - DIZZINESS [None]
  - FATIGUE [None]
